FAERS Safety Report 4764233-7 (Version None)
Quarter: 2005Q3

REPORT INFORMATION
  Report Type: 
  Country: None (occurrence: None)
  Receive Date: 20050907
  Receipt Date: 20050907
  Transmission Date: 20060218
  Serious: Yes (Other)
  Sender: FDA-Public Use
  Company Number: None

PATIENT
  Age: 55 Year
  Sex: Female
  Weight: 80.7403 kg

DRUGS (1)
  1. ZICAM    ?     MATRIXX  (ZN) [Suspect]
     Indication: NASOPHARYNGITIS
     Dosage: 1       1     NASAL   (ONCE)
     Route: 045
     Dates: start: 20050905, end: 20050905

REACTIONS (4)
  - ANXIETY [None]
  - EYE IRRITATION [None]
  - NASAL DISCOMFORT [None]
  - RHINORRHOEA [None]
